FAERS Safety Report 4502782-7 (Version None)
Quarter: 2004Q4

REPORT INFORMATION
  Report Type: 
  Country: None (occurrence: None)
  Receive Date: 20041116
  Receipt Date: 20041116
  Transmission Date: 20050328
  Serious: No
  Sender: FDA-Public Use
  Company Number: None

PATIENT
  Age: 64 Year
  Sex: Male
  Weight: 77.1115 kg

DRUGS (2)
  1. LOVASTATIN [Suspect]
     Indication: HYPERLIPIDAEMIA
  2. SIMVASTATIN [Suspect]
     Indication: HYPERLIPIDAEMIA

REACTIONS (1)
  - NEPHROLITHIASIS [None]
